FAERS Safety Report 9812795 (Version 1)
Quarter: 2014Q1

REPORT INFORMATION
  Report Type: Spontaneous
  Country: US (occurrence: None)
  Receive Date: 20140108
  Receipt Date: 20140108
  Transmission Date: 20141002
  Serious: Yes (Hospitalization)
  Sender: FDA-Public Use
  Company Number: SYM-2013-14546

PATIENT
  Age: 18 Year
  Sex: Male

DRUGS (2)
  1. SOLODYN [Suspect]
     Indication: ACNE
     Route: 048
  2. UNSPECIFIED MEDICATIONS (ALL OTHER THERAPEUTIC PRODUCTS0 (NULL) [Concomitant]

REACTIONS (10)
  - Autoimmune hepatitis [None]
  - Porphyria acute [None]
  - Syncope [None]
  - Visual acuity reduced [None]
  - Loss of consciousness [None]
  - Haematochezia [None]
  - Stress [None]
  - Depression [None]
  - Weight increased [None]
  - Economic problem [None]
